FAERS Safety Report 11864653 (Version 1)
Quarter: 2015Q4

REPORT INFORMATION
  Report Type: Spontaneous
  Country: US (occurrence: US)
  Receive Date: 20151223
  Receipt Date: 20151223
  Transmission Date: 20160305
  Serious: Yes (Other)
  Sender: FDA-Public Use
  Company Number: US-PFIZER INC-2015462809

PATIENT
  Sex: Female

DRUGS (1)
  1. CORTISONE ACETATE. [Suspect]
     Active Substance: CORTISONE ACETATE
     Dosage: UNK

REACTIONS (4)
  - Ear discomfort [Unknown]
  - Dizziness [Unknown]
  - Incorrect dose administered [Unknown]
  - Endocrine disorder [Unknown]

NARRATIVE: CASE EVENT DATE: 2012
